FAERS Safety Report 11622144 (Version 1)
Quarter: 2015Q4

REPORT INFORMATION
  Report Type: Spontaneous
  Country: US (occurrence: US)
  Receive Date: 20151013
  Receipt Date: 20151013
  Transmission Date: 20160304
  Serious: No
  Sender: FDA-Public Use
  Company Number: US-JNJFOC-20150903558

PATIENT
  Age: 85 Year
  Sex: Male
  Weight: 73.48 kg

DRUGS (6)
  1. OMEPRAZOLE. [Concomitant]
     Active Substance: OMEPRAZOLE
     Indication: OESOPHAGEAL DISORDER
     Route: 065
  2. ALL OTHER THERAPEUTIC PRODUCTS [Concomitant]
     Active Substance: UNSPECIFIED INGREDIENT
     Indication: PROSTATIC DISORDER
     Route: 065
  3. CHOLESTEROL DRUG, NOS [Concomitant]
     Indication: BLOOD CHOLESTEROL
     Route: 065
  4. UNSPECIFIED BLOOD PRESSURE MEDS [Concomitant]
     Indication: BLOOD PRESSURE MEASUREMENT
     Route: 065
  5. VISINE A [Suspect]
     Active Substance: NAPHAZOLINE HYDROCHLORIDE\PHENIRAMINE MALEATE
     Route: 047
  6. VISINE A [Suspect]
     Active Substance: NAPHAZOLINE HYDROCHLORIDE\PHENIRAMINE MALEATE
     Indication: EYE PRURITUS
     Dosage: 2-3 DROPS ONE TIME/ONE EYE
     Route: 047
     Dates: start: 20150903, end: 20150903

REACTIONS (2)
  - Abnormal sensation in eye [Recovering/Resolving]
  - Drug ineffective [Unknown]

NARRATIVE: CASE EVENT DATE: 20150903
